FAERS Safety Report 8172142-9 (Version None)
Quarter: 2012Q1

REPORT INFORMATION
  Report Type: 
  Country: None (occurrence: None)
  Receive Date: 20120228
  Receipt Date: 20120227
  Transmission Date: 20120608
  Serious: Yes (Hospitalization, Other)
  Sender: FDA-Public Use
  Company Number: US-MERCK-1012USA02366

PATIENT
  Age: 63 Year
  Sex: Female
  Weight: 69 kg

DRUGS (5)
  1. VERELAN [Concomitant]
     Indication: HYPERTENSION
     Route: 065
     Dates: start: 19921109
  2. FOSAMAX [Suspect]
     Route: 048
     Dates: start: 19980101
  3. FOSAMAX [Suspect]
     Indication: OSTEOPOROSIS
     Route: 048
  4. VITAMINS (UNSPECIFIED) [Concomitant]
     Route: 065
  5. ALENDRONATE SODIUM [Suspect]
     Route: 048
     Dates: end: 20100125

REACTIONS (41)
  - SINUSITIS [None]
  - CYST [None]
  - BURSITIS [None]
  - BLOOD CHOLESTEROL INCREASED [None]
  - CONSTIPATION [None]
  - CYSTITIS [None]
  - FOOT FRACTURE [None]
  - INTERVERTEBRAL DISC DEGENERATION [None]
  - COLONIC POLYP [None]
  - HYPOTENSION [None]
  - URINE OUTPUT DECREASED [None]
  - TINNITUS [None]
  - HAEMORRHAGIC ANAEMIA [None]
  - URINARY TRACT INFECTION [None]
  - ABDOMINAL PAIN LOWER [None]
  - FOLLICULITIS [None]
  - ARTHRALGIA [None]
  - FEMUR FRACTURE [None]
  - ATELECTASIS [None]
  - NAUSEA [None]
  - SECRETION DISCHARGE [None]
  - BLOOD SODIUM DECREASED [None]
  - HYPERLIPIDAEMIA [None]
  - INTESTINAL MASS [None]
  - GINGIVAL RECESSION [None]
  - ANAEMIA [None]
  - PULMONARY FIBROSIS [None]
  - GINGIVAL BLEEDING [None]
  - RENAL DISORDER [None]
  - LYMPHADENOPATHY [None]
  - FALL [None]
  - BLOOD CALCIUM DECREASED [None]
  - VERTEBRAL FORAMINAL STENOSIS [None]
  - OSTEOARTHRITIS [None]
  - EXTRASYSTOLES [None]
  - FRACTURE NONUNION [None]
  - FRACTURE DELAYED UNION [None]
  - RENAL CYST [None]
  - DIVERTICULUM [None]
  - CATARACT [None]
  - STRESS FRACTURE [None]
